FAERS Safety Report 12953415 (Version 2)
Quarter: 2016Q4

REPORT INFORMATION
  Report Type: Spontaneous
  Country: US (occurrence: US)
  Receive Date: 20161117
  Receipt Date: 20161214
  Transmission Date: 20170207
  Serious: Yes (Other)
  Sender: FDA-Public Use
  Company Number: US-SA-2016SA207454

PATIENT
  Age: 44 Year
  Sex: Female

DRUGS (2)
  1. ALLEGRA [Suspect]
     Active Substance: FEXOFENADINE HYDROCHLORIDE
     Indication: MULTIPLE ALLERGIES
     Route: 048
     Dates: start: 20161104, end: 20161106
  2. ZYRTEC [Concomitant]
     Active Substance: CETIRIZINE HYDROCHLORIDE
     Route: 065

REACTIONS (10)
  - Tremor [Unknown]
  - Aggression [Unknown]
  - Anxiety [Unknown]
  - Agitation [Unknown]
  - Fear [Unknown]
  - Suicidal ideation [Recovering/Resolving]
  - Disturbance in attention [Unknown]
  - Depression [Recovering/Resolving]
  - Anger [Unknown]
  - Lethargy [Unknown]

NARRATIVE: CASE EVENT DATE: 20161106
